FAERS Safety Report 6064587-8 (Version None)
Quarter: 2009Q1

REPORT INFORMATION
  Report Type: 
  Country: None (occurrence: None)
  Receive Date: 20090204
  Receipt Date: 20090130
  Transmission Date: 20090719
  Serious: Yes (Other)
  Sender: FDA-Public Use
  Company Number: B0555947A

PATIENT
  Age: 10 Year

DRUGS (4)
  1. RELENZA [Suspect]
     Indication: INFLUENZA
     Dosage: 10MG TWICE PER DAY
     Route: 055
     Dates: start: 20071212, end: 20071216
  2. HOKUNALIN [Concomitant]
     Indication: DRUG USE FOR UNKNOWN INDICATION
     Dosage: 2MG PER DAY
     Route: 065
  3. ONON [Concomitant]
     Indication: DRUG USE FOR UNKNOWN INDICATION
     Dosage: .7G TWICE PER DAY
     Route: 065
  4. OKILOT [Concomitant]
     Indication: DRUG USE FOR UNKNOWN INDICATION
     Dosage: .5G TWICE PER DAY
     Route: 065

REACTIONS (1)
  - SLEEP TALKING [None]
